FAERS Safety Report 12723918 (Version 1)
Quarter: 2016Q3

REPORT INFORMATION
  Report Type: Spontaneous
  Country: US (occurrence: US)
  Receive Date: 20160907
  Receipt Date: 20160907
  Transmission Date: 20161109
  Serious: Yes (Disabling)
  Sender: FDA-Public Use
  Company Number: None

PATIENT
  Age: 54 Year
  Sex: Female
  Weight: 87.75 kg

DRUGS (11)
  1. CYTOMEL [Concomitant]
     Active Substance: LIOTHYRONINE SODIUM
  2. QUERCETIN BROMELAIN [Concomitant]
  3. PROMETRIUM [Suspect]
     Active Substance: PROGESTERONE
     Indication: HOT FLUSH
     Dosage: AT BEDTIME
     Route: 048
     Dates: start: 20160501, end: 20160902
  4. SYNTHROID [Concomitant]
     Active Substance: LEVOTHYROXINE SODIUM
  5. METHYLATED B - COMPLEX [Concomitant]
  6. VITAMIN D3 [Concomitant]
     Active Substance: CHOLECALCIFEROL
  7. MUCINEX (GUAIFINESIN) [Concomitant]
  8. VITAMIN A (RETINYL PALMITATE) [Concomitant]
  9. ESTRADIOL. [Concomitant]
     Active Substance: ESTRADIOL
  10. VITAMIN K2 [Concomitant]
     Active Substance: MENAQUINONE 6
  11. TRIMETHYLGLYCENE [Concomitant]

REACTIONS (8)
  - Somnolence [None]
  - Eye discharge [None]
  - Suicidal ideation [None]
  - Depressed mood [None]
  - Acne [None]
  - Skin disorder [None]
  - Asthenopia [None]
  - Fatigue [None]

NARRATIVE: CASE EVENT DATE: 20160902
